FAERS Safety Report 6229173-5 (Version None)
Quarter: 2009Q2

REPORT INFORMATION
  Report Type: 
  Country: None (occurrence: None)
  Receive Date: 20090601
  Receipt Date: 20081222
  Transmission Date: 20091009
  Serious: Yes (Hospitalization)
  Sender: FDA-Public Use
  Company Number: US200812005529

PATIENT
  Age: 68 Year
  Sex: Male
  Weight: 89.8 kg

DRUGS (5)
  1. BYETTA [Suspect]
     Indication: TYPE 2 DIABETES MELLITUS
     Dosage: 5 UG, 2/D, SUBCUTANEOUS
     Route: 058
     Dates: start: 20060101
  2. EXENATIDE 5MCG PEN, DISPOSABLE DEVICE (EXENATIDEPEN (5MCG)) PEN, DISPO [Concomitant]
  3. MINOXIDIL [Concomitant]
  4. VALIUM [Concomitant]
  5. FOLIC ACID [Concomitant]

REACTIONS (13)
  - ARTHROPATHY [None]
  - CHONDROPATHY [None]
  - CHRONIC OBSTRUCTIVE PULMONARY DISEASE [None]
  - DYSPEPSIA [None]
  - ERYTHEMA [None]
  - FLUID RETENTION [None]
  - GASTROOESOPHAGEAL REFLUX DISEASE [None]
  - HERNIA [None]
  - JOINT SWELLING [None]
  - JOINT WARMTH [None]
  - PROCEDURAL PAIN [None]
  - RENAL FAILURE CHRONIC [None]
  - RHEUMATOID ARTHRITIS [None]
